FAERS Safety Report 5030195-0 (Version None)
Quarter: 2006Q2

REPORT INFORMATION
  Report Type: 
  Country: None (occurrence: None)
  Receive Date: 20060620
  Receipt Date: 20060518
  Transmission Date: 20061013
  Serious: Yes (Other)
  Sender: FDA-Public Use
  Company Number: 2006UW09591

PATIENT
  Age: 18 Year
  Sex: Male
  Weight: 70.5 kg

DRUGS (4)
  1. SEROQUEL [Suspect]
     Indication: ANXIETY
     Route: 048
     Dates: end: 20060215
  2. ACCUTANE [Suspect]
     Indication: ACNE
     Route: 048
     Dates: start: 20051222, end: 20060220
  3. AMOXICILLIN [Concomitant]
     Indication: ACNE
  4. ZOLOFT [Concomitant]
     Indication: DEPRESSION

REACTIONS (2)
  - ANHEDONIA [None]
  - DEPRESSION [None]
